FAERS Safety Report 16439423 (Version 1)
Quarter: 2019Q2

REPORT INFORMATION
  Report Type: Report from Study
  Country: IT (occurrence: IT)
  Receive Date: 20190617
  Receipt Date: 20190617
  Transmission Date: 20190711
  Serious: Yes (Other)
  Sender: FDA-Public Use
  Company Number: IT-PFIZER INC-2019249059

PATIENT
  Age: 65 Year
  Sex: Female

DRUGS (1)
  1. BASSADO [Suspect]
     Active Substance: DOXYCYCLINE HYCLATE
     Indication: BRONCHITIS
     Dosage: 100 MG, 1X/DAY
     Route: 048
     Dates: start: 20190517, end: 20190517

REACTIONS (5)
  - Paraesthesia oral [Recovering/Resolving]
  - Paraesthesia [Recovering/Resolving]
  - Presyncope [Recovering/Resolving]
  - Drug hypersensitivity [Recovering/Resolving]
  - Choking sensation [Recovering/Resolving]

NARRATIVE: CASE EVENT DATE: 20190517
